FAERS Safety Report 18035651 (Version 2)
Quarter: 2020Q3

REPORT INFORMATION
  Report Type: Report from Study
  Country: FR (occurrence: FR)
  Receive Date: 20200717
  Receipt Date: 20200820
  Transmission Date: 20201103
  Serious: Yes (Hospitalization)
  Sender: FDA-Public Use
  Company Number: FR-ROCHE-2641564

PATIENT
  Sex: Female

DRUGS (7)
  1. ROCEPHINE [Concomitant]
     Active Substance: CEFTRIAXONE SODIUM
  2. AUGMENTIN [Concomitant]
     Active Substance: AMOXICILLIN\CLAVULANATE POTASSIUM
  3. ACYCLOVIR. [Concomitant]
     Active Substance: ACYCLOVIR
  4. AMIKACINE [Concomitant]
     Active Substance: AMIKACIN
  5. ATEZOLIZUMAB. [Suspect]
     Active Substance: ATEZOLIZUMAB
     Indication: CERVIX CARCINOMA
     Route: 041
     Dates: start: 20200618
  6. PIPERACILLINE / TAZOBACTAM [Concomitant]
     Active Substance: PIPERACILLIN SODIUM\TAZOBACTAM SODIUM
  7. OFLOCET [Concomitant]
     Active Substance: OFLOXACIN

REACTIONS (3)
  - Otitis externa [Recovered/Resolved]
  - Encephalitis brain stem [Recovered/Resolved]
  - Meningitis bacterial [Not Recovered/Not Resolved]

NARRATIVE: CASE EVENT DATE: 20200703
